FAERS Safety Report 6264763-5 (Version None)
Quarter: 2009Q3

REPORT INFORMATION
  Report Type: 
  Country: None (occurrence: None)
  Receive Date: 20090710
  Receipt Date: 20090707
  Transmission Date: 20100115
  Serious: Yes (Death)
  Sender: FDA-Public Use
  Company Number: JP-SANOFI-SYNTHELABO-F01200900643

PATIENT
  Sex: Male
  Weight: 66.6 kg

DRUGS (13)
  1. IRINOTECAN HCL [Suspect]
     Dosage: UNK
     Route: 042
     Dates: start: 20071121, end: 20080206
  2. DEXAERT [Concomitant]
     Dates: start: 20070727
  3. KYTRIL [Concomitant]
     Dates: start: 20070727
  4. DUROTEP [Concomitant]
     Dates: start: 20070720
  5. LOXONIN [Concomitant]
     Dates: start: 20070703
  6. MYSLEE [Concomitant]
     Dates: start: 20070728
  7. LAXOBERON [Concomitant]
     Dates: start: 20070617
  8. MAGMITT [Concomitant]
     Dates: start: 20070703
  9. MUCOSTA [Concomitant]
     Dates: start: 20070707
  10. CALCIUM LEVOFOLINATE [Suspect]
     Dosage: UNK
     Route: 042
     Dates: start: 20070727, end: 20080206
  11. FLUOROURACIL [Suspect]
     Dosage: UNK
     Route: 042
     Dates: start: 20070727, end: 20080206
  12. AVASTIN [Suspect]
     Dosage: 5 MG/KG
     Route: 042
     Dates: start: 20070726, end: 20080206
  13. ELPLAT [Suspect]
     Indication: COLON CANCER METASTATIC
     Dosage: 85 MG/M2
     Route: 042
     Dates: start: 20071031, end: 20071031

REACTIONS (1)
  - DISEASE PROGRESSION [None]
